FAERS Safety Report 8393186-8 (Version None)
Quarter: 2012Q2

REPORT INFORMATION
  Report Type: 
  Country: None (occurrence: None)
  Receive Date: 20120529
  Receipt Date: 20120517
  Transmission Date: 20120825
  Serious: No
  Sender: FDA-Public Use
  Company Number: US-ABBOTT-12P-163-0937084-00

PATIENT
  Sex: Male
  Weight: 93.07 kg

DRUGS (2)
  1. UNKNOWN STATIN [Concomitant]
     Indication: PROPHYLAXIS
     Dates: start: 20120301
  2. ANDROGEL [Suspect]
     Indication: BLOOD TESTOSTERONE DECREASED
     Dosage: 2 PUMPS PER DAY
     Dates: start: 20120301

REACTIONS (5)
  - ORGASM ABNORMAL [None]
  - DRUG INEFFECTIVE [None]
  - DISTURBANCE IN SEXUAL AROUSAL [None]
  - LIBIDO DECREASED [None]
  - SEXUAL DYSFUNCTION [None]
